FAERS Safety Report 7813869-5 (Version None)
Quarter: 2011Q4

REPORT INFORMATION
  Report Type: 
  Country: None (occurrence: None)
  Receive Date: 20111011
  Receipt Date: 20111004
  Transmission Date: 20120403
  Serious: Yes (Hospitalization, Other)
  Sender: FDA-Public Use
  Company Number: 2010SP056522

PATIENT
  Age: 27 Year
  Sex: Female
  Weight: 88.4514 kg

DRUGS (1)
  1. NUVARING [Suspect]
     Indication: CONTRACEPTION
     Dates: start: 20050101, end: 20050301

REACTIONS (31)
  - EMOTIONAL DISORDER [None]
  - DIZZINESS [None]
  - CARDIAC FAILURE CONGESTIVE [None]
  - ANXIETY [None]
  - DRUG DEPENDENCE [None]
  - WEIGHT DECREASED [None]
  - VOMITING [None]
  - INTRACRANIAL PRESSURE INCREASED [None]
  - CEREBROVASCULAR ACCIDENT [None]
  - ARTHRALGIA [None]
  - OEDEMA PERIPHERAL [None]
  - INFLUENZA [None]
  - IRRITABILITY [None]
  - DEPRESSION [None]
  - PAIN [None]
  - HEART RATE IRREGULAR [None]
  - MENTAL DISORDER [None]
  - MUSCULOSKELETAL DISCOMFORT [None]
  - RECTAL HAEMORRHAGE [None]
  - CEREBRAL VENOUS THROMBOSIS [None]
  - HYPERCOAGULATION [None]
  - MUSCULOSKELETAL PAIN [None]
  - SLEEP APNOEA SYNDROME [None]
  - MULTIPLE INJURIES [None]
  - UNEVALUABLE EVENT [None]
  - CENTRAL PAIN SYNDROME [None]
  - HEADACHE [None]
  - NAUSEA [None]
  - CEREBELLAR HAEMORRHAGE [None]
  - THALAMIC INFARCTION [None]
  - VARICOSE VEIN [None]
